FAERS Safety Report 18415197 (Version 1)
Quarter: 2020Q4

REPORT INFORMATION
  Report Type: Spontaneous
  Country: US (occurrence: US)
  Receive Date: 20201022
  Receipt Date: 20201022
  Transmission Date: 20210114
  Serious: Yes (Other)
  Sender: FDA-Public Use
  Company Number: None

PATIENT
  Age: 74 Year
  Sex: Female
  Weight: 73.5 kg

DRUGS (1)
  1. COVID-19 CONVALESCENT PLASMA. [Suspect]
     Active Substance: COVID-19 CONVALESCENT PLASMA

REACTIONS (1)
  - Transfusion-related circulatory overload [None]

NARRATIVE: CASE EVENT DATE: 20201021
